FAERS Safety Report 13646667 (Version 1)
Quarter: 2017Q2

REPORT INFORMATION
  Report Type: Spontaneous
  Country: US (occurrence: US)
  Receive Date: 20170612
  Receipt Date: 20170612
  Transmission Date: 20170830
  Serious: Yes (Hospitalization)
  Sender: FDA-Public Use
  Company Number: None

PATIENT
  Age: 78 Year
  Sex: Male

DRUGS (1)
  1. CEFTRIAXONE. [Suspect]
     Active Substance: CEFTRIAXONE
     Indication: ARTHRITIS BACTERIAL
     Route: 042
     Dates: start: 20170511, end: 20170603

REACTIONS (4)
  - Therapy cessation [None]
  - Pruritus [None]
  - Rash generalised [None]
  - Hypersensitivity [None]

NARRATIVE: CASE EVENT DATE: 20170603
